FAERS Safety Report 15658436 (Version 1)
Quarter: 2018Q4

REPORT INFORMATION
  Report Type: Spontaneous
  Country: MQ (occurrence: MQ)
  Receive Date: 20181126
  Receipt Date: 20181126
  Transmission Date: 20190205
  Serious: Yes (Death)
  Sender: FDA-Public Use
  Company Number: MQ-PFIZER INC-2018474503

PATIENT
  Age: 80 Year
  Sex: Male

DRUGS (10)
  1. VANCOMYCIN [Suspect]
     Active Substance: VANCOMYCIN
     Indication: ALCALIGENES INFECTION
     Dosage: UNK
     Dates: start: 201605
  2. CEFTAZIDIME. [Suspect]
     Active Substance: CEFTAZIDIME
     Indication: STAPHYLOCOCCAL MEDIASTINITIS
     Dosage: UNK
     Dates: start: 2016, end: 201606
  3. CLOXACILLINE [CLOXACILLIN] [Suspect]
     Active Substance: CLOXACILLIN
     Indication: STAPHYLOCOCCAL MEDIASTINITIS
     Dosage: 2 G, UNK (2G X 6 FOR 6 WEEKS)
     Dates: start: 2016
  4. MEROPENEM. [Suspect]
     Active Substance: MEROPENEM
     Indication: STAPHYLOCOCCAL MEDIASTINITIS
     Dosage: UNK
     Dates: start: 201605
  5. VANCOMYCIN [Suspect]
     Active Substance: VANCOMYCIN
     Indication: STAPHYLOCOCCAL MEDIASTINITIS
     Dosage: UNK
     Dates: start: 2016, end: 2016
  6. GENTAMYCIN [Suspect]
     Active Substance: GENTAMICIN
     Indication: ALCALIGENES INFECTION
  7. CLOXACILLINE [CLOXACILLIN] [Suspect]
     Active Substance: CLOXACILLIN
     Indication: ALCALIGENES INFECTION
  8. MEROPENEM. [Suspect]
     Active Substance: MEROPENEM
     Indication: ALCALIGENES INFECTION
  9. CEFTAZIDIME. [Suspect]
     Active Substance: CEFTAZIDIME
     Indication: ALCALIGENES INFECTION
  10. GENTAMYCIN [Suspect]
     Active Substance: GENTAMICIN
     Indication: STAPHYLOCOCCAL MEDIASTINITIS
     Dosage: UNK
     Dates: start: 2016, end: 2016

REACTIONS (1)
  - Drug ineffective [Fatal]

NARRATIVE: CASE EVENT DATE: 2016
